FAERS Safety Report 18502535 (Version 1)
Quarter: 2020Q4

REPORT INFORMATION
  Report Type: Spontaneous
  Country: AU (occurrence: AU)
  Receive Date: 20201113
  Receipt Date: 20201113
  Transmission Date: 20210114
  Serious: Yes (Hospitalization, Other)
  Sender: FDA-Public Use
  Company Number: AU-BAYER-2020-239138

PATIENT
  Age: 38 Year
  Sex: Female

DRUGS (1)
  1. GADOVIST [Suspect]
     Active Substance: GADOBUTROL
     Indication: BREAST CANCER
     Dosage: 7.5 ML, ONCE
     Route: 042
     Dates: start: 20201103

REACTIONS (6)
  - Blindness transient [None]
  - Erythema [None]
  - Peripheral swelling [None]
  - Urticaria [None]
  - Swelling face [None]
  - Tremor [None]

NARRATIVE: CASE EVENT DATE: 20201103
